FAERS Safety Report 13245743 (Version 1)
Quarter: 2017Q1

REPORT INFORMATION
  Report Type: Spontaneous
  Country: HR (occurrence: HR)
  Receive Date: 20170217
  Receipt Date: 20170217
  Transmission Date: 20170428
  Serious: Yes (Life-Threatening, Hospitalization, Other)
  Sender: FDA-Public Use
  Company Number: HR-ASTRAZENECA-2017SE16624

PATIENT
  Age: 56 Year
  Sex: Female

DRUGS (4)
  1. SEROQUEL XR [Suspect]
     Active Substance: QUETIAPINE FUMARATE
     Dosage: 8000.0MG UNKNOWN
     Route: 048
     Dates: start: 20161212
  2. VELAFAX XL [Suspect]
     Active Substance: VENLAFAXINE HYDROCHLORIDE
     Dosage: 3750.0MG UNKNOWN
     Route: 048
     Dates: start: 20161212
  3. MODITEN [Suspect]
     Active Substance: FLUPHENAZINE HYDROCHLORIDE
     Dosage: 20.0MG UNKNOWN
     Route: 048
     Dates: start: 20161212
  4. SANVAL [Suspect]
     Active Substance: ZOLPIDEM TARTRATE
     Dosage: 300.0MG UNKNOWN
     Route: 048
     Dates: start: 20161212

REACTIONS (2)
  - Suicide attempt [Unknown]
  - Intentional overdose [Unknown]

NARRATIVE: CASE EVENT DATE: 20161212
